FAERS Safety Report 6746441-9 (Version None)
Quarter: 2010Q2

REPORT INFORMATION
  Report Type: 
  Country: None (occurrence: None)
  Receive Date: 20100528
  Receipt Date: 20100126
  Transmission Date: 20101027
  Serious: No
  Sender: FDA-Public Use
  Company Number: US-ASTRAZENECA-2010SE04103

PATIENT
  Age: 84 Year
  Sex: Female

DRUGS (6)
  1. PRILOSEC [Suspect]
     Indication: DYSPEPSIA
     Dosage: UNKNOWN
     Route: 048
  2. PRILOSEC [Interacting]
     Indication: COSTOCHONDRITIS
     Dosage: UNKNOWN
     Route: 048
  3. PRILOSEC OTC [Interacting]
     Indication: DYSPEPSIA
     Dosage: UNKNOWN
     Route: 048
  4. PRILOSEC OTC [Interacting]
     Indication: COSTOCHONDRITIS
     Dosage: UNKNOWN
     Route: 048
  5. PLAVIX [Interacting]
     Indication: CHEST PAIN
     Route: 048
  6. PLAVIX [Interacting]
     Indication: CARDIAC OPERATION
     Route: 048

REACTIONS (3)
  - CONTUSION [None]
  - POTENTIATING DRUG INTERACTION [None]
  - RASH MACULAR [None]
